FAERS Safety Report 4878809-X (Version None)
Quarter: 2006Q1

REPORT INFORMATION
  Report Type: 
  Country: None (occurrence: None)
  Receive Date: 20060110
  Receipt Date: 20060110
  Transmission Date: 20060701
  Serious: Yes (Hospitalization)
  Sender: FDA-Public Use
  Company Number: None

PATIENT
  Age: 2 Month
  Sex: Male
  Weight: 6.4 kg

DRUGS (1)
  1. VICKS VAPOSTEAM LIQUID MEDICATION [Suspect]
     Indication: RESPIRATORY TRACT CONGESTION
     Dosage: BATHED IN UNKOWN CONCENTRATION   ONCE  TOP
     Route: 061
     Dates: start: 20051228, end: 20051228

REACTIONS (5)
  - ASPARTATE AMINOTRANSFERASE INCREASED [None]
  - CONVULSION [None]
  - INCORRECT ROUTE OF DRUG ADMINISTRATION [None]
  - LIVER DISORDER [None]
  - RHABDOMYOLYSIS [None]
